FAERS Safety Report 5239370-3 (Version None)
Quarter: 2007Q1

REPORT INFORMATION
  Report Type: 
  Country: None (occurrence: None)
  Receive Date: 20070216
  Receipt Date: 20070205
  Transmission Date: 20070707
  Serious: Yes (Hospitalization)
  Sender: FDA-Public Use
  Company Number: PHEH2007US01634

PATIENT
  Age: 68 Year
  Sex: Female

DRUGS (2)
  1. MEPROBAMATE [Concomitant]
  2. MIACALCIN [Suspect]
     Indication: OSTEOPOROSIS
     Dosage: 200 IU, QD
     Dates: start: 20000101

REACTIONS (4)
  - ACCIDENT [None]
  - FALL [None]
  - HIP FRACTURE [None]
  - HIP SURGERY [None]
